FAERS Safety Report 19098637 (Version 1)
Quarter: 2021Q2

REPORT INFORMATION
  Report Type: Spontaneous
  Country: DE (occurrence: DE)
  Receive Date: 20210406
  Receipt Date: 20210406
  Transmission Date: 20210717
  Serious: Yes (Other)
  Sender: FDA-Public Use
  Company Number: DE-PFIZER INC-2021060766

PATIENT
  Age: 90 Year
  Sex: Male

DRUGS (3)
  1. TAVOR EXPIDET [Suspect]
     Active Substance: LORAZEPAM
     Indication: SLEEP DISORDER
     Dosage: 1 MG
  2. TAVOR EXPIDET [Suspect]
     Active Substance: LORAZEPAM
     Dosage: 1 MG
  3. TAVOR EXPIDET [Suspect]
     Active Substance: LORAZEPAM
     Dosage: 2.5 MG

REACTIONS (5)
  - Gastritis [Unknown]
  - Malaise [Unknown]
  - Nausea [Unknown]
  - Abdominal pain upper [Unknown]
  - Drug ineffective [Unknown]
